FAERS Safety Report 9458085 (Version 2)
Quarter: 2013Q4

REPORT INFORMATION
  Report Type: Spontaneous
  Country: GB (occurrence: None)
  Receive Date: 20130812
  Receipt Date: 20131129
  Transmission Date: 20140711
  Serious: Yes (Congenital Anomaly, Other)
  Sender: FDA-Public Use
  Company Number: AUR-APL-2013-06418

PATIENT
  Sex: Female

DRUGS (2)
  1. GABAPENTIN (GABAPENTIN) [Suspect]
     Indication: DIABETIC NEPHROPATHY
     Route: 064
  2. INSULIN (INSULIN) [Concomitant]

REACTIONS (5)
  - Foetal exposure during pregnancy [None]
  - Cerebral ventricle dilatation [None]
  - Caudal regression syndrome [None]
  - Limb malformation [None]
  - Diabetic foetopathy [None]
